FAERS Safety Report 12314632 (Version 1)
Quarter: 2016Q2

REPORT INFORMATION
  Report Type: Spontaneous
  Country: CA (occurrence: CA)
  Receive Date: 20160428
  Receipt Date: 20160428
  Transmission Date: 20160815
  Serious: Yes (Life-Threatening, Hospitalization, Disabling)
  Sender: FDA-Public Use
  Company Number: CA-BAYER-2016-081445

PATIENT
  Age: 28 Year
  Sex: Female
  Weight: 91 kg

DRUGS (5)
  1. MAXALT [Concomitant]
     Active Substance: RIZATRIPTAN BENZOATE
  2. YAZ [Suspect]
     Active Substance: DROSPIRENONE\ETHINYL ESTRADIOL
     Indication: CONTRACEPTION
     Dosage: 1 DF, ONCE
     Route: 048
  3. TRAMADOL HYDROCHLORIDE. [Concomitant]
     Active Substance: TRAMADOL HYDROCHLORIDE
  4. DICETEL [Concomitant]
     Active Substance: PINAVERIUM BROMIDE
  5. FIORINAL [Concomitant]
     Active Substance: ASPIRIN\BUTALBITAL\CAFFEINE

REACTIONS (9)
  - Disseminated intravascular coagulation [Recovered/Resolved]
  - Metabolic acidosis [Recovered/Resolved]
  - Pulmonary embolism [Recovered/Resolved]
  - Deep vein thrombosis [Recovered/Resolved]
  - Subdural haematoma [Recovered/Resolved]
  - Acute kidney injury [Recovered/Resolved]
  - Anuria [Recovered/Resolved]
  - Right ventricular failure [Recovered/Resolved]
  - Cardio-respiratory arrest [Recovered/Resolved]
